FAERS Safety Report 15133107 (Version 1)
Quarter: 2018Q3

REPORT INFORMATION
  Report Type: Report from Study
  Country: IT (occurrence: IT)
  Receive Date: 20180712
  Receipt Date: 20180712
  Transmission Date: 20181010
  Serious: Yes (Hospitalization)
  Sender: FDA-Public Use
  Company Number: IT-TEVA-2018-IT-923850

PATIENT
  Age: 79 Year
  Sex: Male

DRUGS (1)
  1. OLMESARTAN MEDOXOMIL. [Suspect]
     Active Substance: OLMESARTAN MEDOXOMIL
     Indication: HYPERTENSION
     Dosage: 40 MILLIGRAM DAILY;
     Route: 048
     Dates: start: 20180201, end: 20180307

REACTIONS (1)
  - Gastroduodenitis [Recovered/Resolved with Sequelae]

NARRATIVE: CASE EVENT DATE: 20180307
